FAERS Safety Report 15470942 (Version 2)
Quarter: 2018Q4

REPORT INFORMATION
  Report Type: Report from Study
  Country: None (occurrence: RO)
  Receive Date: 20181006
  Receipt Date: 20181115
  Transmission Date: 20190205
  Serious: Yes (Death, Life-Threatening, Hospitalization, Other)
  Sender: FDA-Public Use
  Company Number: RO-ABBVIE-18S-135-2509481-00

PATIENT
  Age: 68 Year
  Sex: Female

DRUGS (2)
  1. DUODOPA [Suspect]
     Active Substance: CARBIDOPA\LEVODOPA
     Indication: PARKINSON^S DISEASE
     Dosage: DM=4.00 DC=4.50 ED=2.20 DCN=3.30 EDN=3.30
     Route: 050
     Dates: start: 20140312
  2. DUODOPA [Suspect]
     Active Substance: CARBIDOPA\LEVODOPA
     Dosage: MD 3.5ML CD 4ML/H ED:2ML CRN 3.4ML/H?EXTRA DOSE 1.7ML
     Route: 050

REACTIONS (6)
  - Furuncle [Fatal]
  - Stoma site discharge [Fatal]
  - Cardiopulmonary failure [Fatal]
  - Abscess [Fatal]
  - Fistula [Fatal]
  - Skin infection [Fatal]

NARRATIVE: CASE EVENT DATE: 20180626
